FAERS Safety Report 9616019 (Version 1)
Quarter: 2013Q4

REPORT INFORMATION
  Report Type: Spontaneous
  Country: US (occurrence: US)
  Receive Date: 20131011
  Receipt Date: 20131011
  Transmission Date: 20140711
  Serious: Yes (Other)
  Sender: FDA-Public Use
  Company Number: US-NAPPMUNDI-USA-2013-0100266

PATIENT
  Age: 56 Year
  Sex: Female

DRUGS (3)
  1. BUTRANS [Suspect]
     Indication: BACK PAIN
     Dosage: 5 MCG/HR, WEEKLY
     Route: 062
     Dates: start: 20130214, end: 20130214
  2. BUTRANS [Suspect]
     Indication: ARTHRITIS
  3. SUBUTEX [Suspect]
     Indication: PAIN
     Dosage: 2 MG, SEE TEXT
     Route: 060

REACTIONS (2)
  - Asthma [Recovered/Resolved]
  - Dyspnoea [Recovered/Resolved]
